FAERS Safety Report 7912293-4 (Version None)
Quarter: 2011Q4

REPORT INFORMATION
  Report Type: 
  Country: None (occurrence: None)
  Receive Date: 20111114
  Receipt Date: 20111104
  Transmission Date: 20120403
  Serious: Yes (Other)
  Sender: FDA-Public Use
  Company Number: US-BAYER-2011-021250

PATIENT
  Age: 23 Year
  Sex: Female
  Weight: 47.619 kg

DRUGS (4)
  1. TRAZODONE HCL [Concomitant]
     Indication: SLEEP DISORDER
     Dosage: 50 MG, QD
     Dates: start: 20090326
  2. PRISTIQ [Concomitant]
     Indication: DEPRESSION
     Dosage: UNK
     Dates: start: 20090126, end: 20100301
  3. YASMIN [Suspect]
     Indication: CONTRACEPTION
     Dosage: UNK
     Route: 048
     Dates: start: 20030101, end: 20050101
  4. HYDROXYZINE [Concomitant]
     Indication: SLEEP DISORDER
     Dosage: 25 MG, QD
     Dates: start: 20090326

REACTIONS (3)
  - GALLBLADDER INJURY [None]
  - CHOLELITHIASIS [None]
  - CHOLECYSTITIS ACUTE [None]
